FAERS Safety Report 11106277 (Version 1)
Quarter: 2015Q2

REPORT INFORMATION
  Report Type: Spontaneous
  Country: FR (occurrence: FR)
  Receive Date: 20150512
  Receipt Date: 20150512
  Transmission Date: 20150821
  Serious: Yes (Other)
  Sender: FDA-Public Use
  Company Number: FR-JNJFOC-20150501642

PATIENT
  Sex: Male

DRUGS (6)
  1. ZYTIGA [Suspect]
     Active Substance: ABIRATERONE ACETATE
     Indication: PROSTATE CANCER
     Route: 048
     Dates: start: 201409
  2. HYDROCORTISONE. [Suspect]
     Active Substance: HYDROCORTISONE
     Indication: PROSTATE CANCER
     Route: 065
     Dates: start: 201408, end: 201504
  3. ZYTIGA [Suspect]
     Active Substance: ABIRATERONE ACETATE
     Indication: NEUROENDOCRINE TUMOUR
     Route: 048
     Dates: start: 201409
  4. PREDNISONE. [Suspect]
     Active Substance: PREDNISONE
     Indication: PROSTATE CANCER
     Route: 065
     Dates: start: 201409
  5. PREDNISONE. [Suspect]
     Active Substance: PREDNISONE
     Indication: NEUROENDOCRINE TUMOUR
     Route: 065
     Dates: start: 201409
  6. HYDROCORTISONE. [Suspect]
     Active Substance: HYDROCORTISONE
     Indication: NEUROENDOCRINE TUMOUR
     Route: 065
     Dates: start: 201408, end: 201504

REACTIONS (1)
  - Adrenal insufficiency [Recovered/Resolved]
